FAERS Safety Report 14515107 (Version 2)
Quarter: 2018Q1

REPORT INFORMATION
  Report Type: Spontaneous
  Country: JP (occurrence: JP)
  Receive Date: 20180210
  Receipt Date: 20180310
  Transmission Date: 20180509
  Serious: Yes (Other)
  Sender: FDA-Public Use
  Company Number: JP-ROCHE-2065465

PATIENT
  Age: 83 Year
  Sex: Male

DRUGS (1)
  1. TAMIFLU [Suspect]
     Active Substance: OSELTAMIVIR PHOSPHATE
     Indication: INFLUENZA
     Dosage: DOSE INTERVAL UNCERTAINTY
     Route: 048

REACTIONS (3)
  - Drug administration error [Unknown]
  - Renal impairment [Unknown]
  - Creatinine renal clearance decreased [Unknown]
